FAERS Safety Report 24643953 (Version 2)
Quarter: 2024Q4

REPORT INFORMATION
  Report Type: Report from Study
  Country: US (occurrence: US)
  Receive Date: 20241120
  Receipt Date: 20241121
  Transmission Date: 20250115
  Serious: Yes (Hospitalization)
  Sender: PFIZER
  Company Number: US-PFIZER INC-202400190124

PATIENT
  Age: 90 Year
  Sex: Female

DRUGS (18)
  1. VYNDAMAX [Suspect]
     Active Substance: TAFAMIDIS
     Indication: Cardiac amyloidosis
     Dosage: TAKE 1 CAPSULE, DAILY. SWALLOW WHOLE
     Route: 048
  2. VYNDAMAX [Suspect]
     Active Substance: TAFAMIDIS
     Dosage: 61 MG, DAILY
     Route: 048
     Dates: start: 20231122
  3. VYNDAMAX [Suspect]
     Active Substance: TAFAMIDIS
     Dosage: UNK
  4. ATORVASTATIN [Concomitant]
     Active Substance: ATORVASTATIN
  5. BUMETANIDE [Concomitant]
     Active Substance: BUMETANIDE
  6. ELIQUIS [Concomitant]
     Active Substance: APIXABAN
  7. LANTUS SOLOSTAR [Concomitant]
     Active Substance: INSULIN GLARGINE
  8. LINZESS [Concomitant]
     Active Substance: LINACLOTIDE
  9. METOPROLOL [Concomitant]
     Active Substance: METOPROLOL
  10. MOUNJARO [Concomitant]
     Active Substance: TIRZEPATIDE
     Dosage: 2.5MG/0.5ML
  11. NITROFURANTOIN [Concomitant]
     Active Substance: NITROFURANTOIN
  12. NOVOLOG [Concomitant]
     Active Substance: INSULIN ASPART
  13. OMEPRAZOLE [Concomitant]
     Active Substance: OMEPRAZOLE
  14. OZEMPIC [Concomitant]
     Active Substance: SEMAGLUTIDE
     Dosage: 1 M SOP 4MG/3ML
  15. PREMARIN [Concomitant]
     Active Substance: ESTROGENS, CONJUGATED
  16. RESTASIS [Concomitant]
     Active Substance: CYCLOSPORINE
     Dosage: UNK
  17. SPIRONOLACTONE [Concomitant]
     Active Substance: SPIRONOLACTONE
  18. TRESIBA [Concomitant]
     Active Substance: INSULIN DEGLUDEC

REACTIONS (1)
  - Cellulitis [Unknown]
